FAERS Safety Report 5429983-8 (Version None)
Quarter: 2007Q3

REPORT INFORMATION
  Report Type: 
  Country: None (occurrence: None)
  Receive Date: 20070829
  Receipt Date: 20070808
  Transmission Date: 20080115
  Serious: No
  Sender: FDA-Public Use
  Company Number: US-BOEHRINGER INGELHEIM PHARMACEUTICALS, INC.-2007-BP-18774BP

PATIENT
  Age: 77 Year
  Sex: Female

DRUGS (7)
  1. AGGRENOX [Suspect]
     Indication: CEREBROVASCULAR ACCIDENT PROPHYLAXIS
     Route: 048
     Dates: start: 20070601
  2. AGGRENOX [Suspect]
     Indication: TRANSIENT ISCHAEMIC ATTACK
  3. PREVACID [Concomitant]
  4. SYNTHROID [Concomitant]
  5. WELLBUTRIN [Concomitant]
  6. COZAAR [Concomitant]
  7. LIPITOR [Concomitant]

REACTIONS (2)
  - HEADACHE [None]
  - NIGHT SWEATS [None]
